FAERS Safety Report 8429895-1 (Version None)
Quarter: 2012Q2

REPORT INFORMATION
  Report Type: 
  Country: None (occurrence: None)
  Receive Date: 20120510
  Receipt Date: 20111223
  Transmission Date: 20120825
  Serious: Yes (Other)
  Sender: FDA-Public Use
  Company Number: 2012030682

PATIENT

DRUGS (1)
  1. HUMATE-P [Suspect]
     Indication: HAEMOPHILIA

REACTIONS (1)
  - BLOOD IMMUNOGLOBULIN M ABNORMAL [None]
